FAERS Safety Report 21190981 (Version 1)
Quarter: 2022Q3

REPORT INFORMATION
  Report Type: Spontaneous
  Country: US (occurrence: US)
  Receive Date: 20220809
  Receipt Date: 20220809
  Transmission Date: 20221026
  Serious: Yes (Other)
  Sender: FDA-Public Use
  Company Number: US-BAYER-2022A109114

PATIENT
  Age: 46 Year
  Sex: Female

DRUGS (2)
  1. MIRENA [Suspect]
     Active Substance: LEVONORGESTREL
     Indication: Endometriosis
     Dosage: 20?G/DAY
     Route: 015
     Dates: start: 20210602
  2. MIRENA [Suspect]
     Active Substance: LEVONORGESTREL
     Indication: Uterine leiomyoma

REACTIONS (5)
  - Genital haemorrhage [None]
  - Abdominal pain lower [None]
  - Off label use of device [None]
  - Device use issue [None]
  - Ehlers-Danlos syndrome [None]

NARRATIVE: CASE EVENT DATE: 20210602
